FAERS Safety Report 24406973 (Version 2)
Quarter: 2024Q4

REPORT INFORMATION
  Report Type: Spontaneous
  Country: VN (occurrence: VN)
  Receive Date: 20241007
  Receipt Date: 20241029
  Transmission Date: 20250114
  Serious: Yes (Other)
  Sender: TEVA
  Company Number: VN-TEVA-VS-3250535

PATIENT

DRUGS (3)
  1. ETOPOSIDE [Suspect]
     Active Substance: ETOPOSIDE
     Indication: Angiocentric lymphoma
     Dosage: VIPD REGIMEN; FROM DAYS?1-3
     Route: 042
  2. IFOSFAMIDE [Suspect]
     Active Substance: IFOSFAMIDE
     Indication: Angiocentric lymphoma
     Dosage: VIPD REGIMEN; FROM DAYS?1-3
     Route: 042
  3. MESNA [Suspect]
     Active Substance: MESNA
     Indication: Angiocentric lymphoma
     Dosage: VIPD REGIMEN; FROM DAYS?1-3
     Route: 042

REACTIONS (2)
  - Hepatotoxicity [Unknown]
  - Nephropathy toxic [Unknown]
